FAERS Safety Report 4923807-0 (Version None)
Quarter: 2006Q1

REPORT INFORMATION
  Report Type: 
  Country: None (occurrence: None)
  Receive Date: 20060227
  Receipt Date: 20060216
  Transmission Date: 20060701
  Serious: Yes (Hospitalization)
  Sender: FDA-Public Use
  Company Number: JP-MERCK-0602USA04912

PATIENT
  Age: 82 Year
  Sex: Female

DRUGS (6)
  1. CLINORIL [Suspect]
     Indication: OSTEOPOROSIS
     Route: 048
  2. ACTONEL [Suspect]
     Indication: OSTEOPOROSIS
     Route: 048
     Dates: start: 20020101
  3. SOLON [Concomitant]
     Indication: OSTEOPOROSIS
     Route: 048
  4. ALFAROL [Concomitant]
     Indication: OSTEOPOROSIS
     Route: 048
  5. CALCIUM ASPARTATE [Concomitant]
     Indication: OSTEOPOROSIS
     Route: 048
  6. INDOMETHACIN [Concomitant]
     Indication: OSTEOPOROSIS
     Route: 061

REACTIONS (2)
  - GASTRIC MUCOSAL LESION [None]
  - GASTRIC ULCER HAEMORRHAGE [None]
